FAERS Safety Report 7505509-X (Version None)
Quarter: 2011Q2

REPORT INFORMATION
  Report Type: 
  Country: None (occurrence: None)
  Receive Date: 20110526
  Receipt Date: 20110516
  Transmission Date: 20111010
  Serious: Yes (Hospitalization)
  Sender: FDA-Public Use
  Company Number: FR-BRISTOL-MYERS SQUIBB COMPANY-15764699

PATIENT
  Age: 61 Year
  Sex: Male

DRUGS (11)
  1. PLAVIX [Suspect]
  2. ADANCOR [Suspect]
  3. REPAGLINIDE [Suspect]
  4. INSULIN [Suspect]
  5. CORGARD [Suspect]
     Indication: HYPERTENSION
     Route: 048
     Dates: start: 20110312
  6. VITAMIN B1 + B6 [Suspect]
  7. ATORVASTATIN [Suspect]
  8. ENALAPRIL MALEATE [Suspect]
     Dosage: 1DF:1UNIT
  9. LASIX [Suspect]
     Indication: HYPERTENSION
     Dosage: DOSE DECREASED TO 40MG ON 24MAR2011
     Route: 048
     Dates: start: 20110312, end: 20110324
  10. MICARDIS HCT [Suspect]
     Dosage: 1DF: 1 UNIT
  11. ALLOPURINOL [Suspect]

REACTIONS (1)
  - THROMBOCYTOPENIA [None]
